FAERS Safety Report 4783374-1 (Version None)
Quarter: 2005Q3

REPORT INFORMATION
  Report Type: 
  Country: None (occurrence: None)
  Receive Date: 20050928
  Receipt Date: 20050912
  Transmission Date: 20060218
  Serious: Yes (Hospitalization)
  Sender: FDA-Public Use
  Company Number: DSA_70680_2005

PATIENT
  Age: 88 Year
  Sex: Female

DRUGS (11)
  1. DARVOCET-N 100 [Suspect]
     Indication: BACK PAIN
     Dosage: 4 TAB QDAY PO
     Route: 048
     Dates: start: 20040601
  2. FORTEO [Suspect]
     Indication: OSTEOPOROSIS
     Dosage: 20 MCG QDAY SC
     Route: 058
     Dates: start: 20040803
  3. EVISTA [Suspect]
     Indication: OSTEOPOROSIS
     Dosage: 60 MG QDAY
     Dates: start: 20030501, end: 20050501
  4. CALCIUM WITH VITAMIN D [Concomitant]
  5. VITAMIN E [Concomitant]
  6. GLUCOSAMINE W/CHONDROITIN [Concomitant]
  7. NAPROSYN [Concomitant]
  8. DOCUSATE SODIUM [Concomitant]
  9. ASPIRIN [Concomitant]
  10. ESOMEPRAZOLE [Concomitant]
  11. BEXTRA [Concomitant]

REACTIONS (19)
  - ANAEMIA [None]
  - ARTHRALGIA [None]
  - ASTHENIA [None]
  - BACK PAIN [None]
  - BONE PAIN [None]
  - CHEST PAIN [None]
  - CHOLELITHIASIS [None]
  - COMPRESSION FRACTURE [None]
  - CONDITION AGGRAVATED [None]
  - DIVERTICULITIS [None]
  - ERYTHEMA [None]
  - GASTROOESOPHAGEAL REFLUX DISEASE [None]
  - HEADACHE [None]
  - INJECTION SITE HAEMORRHAGE [None]
  - INJECTION SITE PAIN [None]
  - MALAISE [None]
  - NAUSEA [None]
  - PANCREATOLITHIASIS [None]
  - SKIN ULCER [None]
